FAERS Safety Report 9086972 (Version 1)
Quarter: 2013Q1

REPORT INFORMATION
  Report Type: Report from Study
  Country: US (occurrence: US)
  Receive Date: 20130131
  Receipt Date: 20130131
  Transmission Date: 20140127
  Serious: No
  Sender: FDA-Public Use
  Company Number: US-ABBOTT-12P-163-0978898-00

PATIENT
  Age: 61 Year
  Sex: Female

DRUGS (8)
  1. HUMIRA [Suspect]
     Indication: CROHN^S DISEASE
     Dates: start: 20120811, end: 20120811
  2. HUMIRA [Suspect]
     Dates: start: 20120825, end: 20120825
  3. HUMIRA [Suspect]
     Dates: start: 20120908, end: 20120908
  4. HUMIRA [Suspect]
     Dates: start: 20120922, end: 20120922
  5. FOLIC ACID [Concomitant]
     Indication: PRODUCT USED FOR UNKNOWN INDICATION
  6. ONE A DAY [Concomitant]
     Indication: PRODUCT USED FOR UNKNOWN INDICATION
     Dosage: ONE DAILY
  7. CALCIUM [Concomitant]
     Indication: BONE DENSITY ABNORMAL
  8. PENTASA [Concomitant]
     Indication: PRODUCT USED FOR UNKNOWN INDICATION
     Dosage: 2 WITH EACH MEAL

REACTIONS (6)
  - Fatigue [Recovering/Resolving]
  - Affect lability [Recovering/Resolving]
  - Fatigue [Recovering/Resolving]
  - Stress [Unknown]
  - Incorrect dose administered [Unknown]
  - Incorrect dose administered [Unknown]
